FAERS Safety Report 7407059-8 (Version None)
Quarter: 2011Q2

REPORT INFORMATION
  Report Type: 
  Country: None (occurrence: None)
  Receive Date: 20110411
  Receipt Date: 20110331
  Transmission Date: 20111010
  Serious: Yes (Hospitalization)
  Sender: FDA-Public Use
  Company Number: DE-ROCHE-763220

PATIENT
  Sex: Female
  Weight: 78 kg

DRUGS (5)
  1. PACLITAXEL [Suspect]
     Dosage: FREQUENCY REPORTED AS Q7
     Route: 042
     Dates: start: 20110107
  2. PACLITAXEL [Suspect]
     Dosage: FREQUENCY: Q7, DOSE REDUCED
     Route: 042
     Dates: start: 20110211, end: 20110218
  3. BEVACIZUMAB [Suspect]
     Dosage: DATE OF LAST DOSE PRIOR TO SAE: 28 JAN 2011
     Route: 042
     Dates: start: 20110107, end: 20110218
  4. CAPECITABINE [Suspect]
     Dosage: FREQUENCY: 1-14 Q21
     Route: 048
     Dates: start: 20110107, end: 20110218
  5. VELMETIA [Concomitant]
     Dates: start: 20070101

REACTIONS (1)
  - MUCOSAL INFLAMMATION [None]
